FAERS Safety Report 5586314-0 (Version None)
Quarter: 2008Q1

REPORT INFORMATION
  Report Type: 
  Country: None (occurrence: None)
  Receive Date: 20080107
  Receipt Date: 20080107
  Transmission Date: 20080703
  Serious: No
  Sender: FDA-Public Use
  Company Number: None

PATIENT
  Age: 48 Year
  Sex: Female
  Weight: 50.3493 kg

DRUGS (4)
  1. ZOLPIDEM [Suspect]
     Indication: INSOMNIA
     Dosage: 10MG QHS BUCCAL
     Route: 002
     Dates: start: 20070201, end: 20071030
  2. ZOLPIDEM [Suspect]
     Indication: MENOPAUSAL SYMPTOMS
     Dosage: 10MG QHS BUCCAL
     Route: 002
     Dates: start: 20070201, end: 20071030
  3. ZOLPIDEM [Suspect]
     Indication: INSOMNIA
     Dosage: 10MG QHS BUCCAL
     Route: 002
     Dates: start: 20030301
  4. ZOLPIDEM [Suspect]
     Indication: MENOPAUSAL SYMPTOMS
     Dosage: 10MG QHS BUCCAL
     Route: 002
     Dates: start: 20030301

REACTIONS (3)
  - PHARMACEUTICAL PRODUCT COMPLAINT [None]
  - SLEEP DISORDER [None]
  - TREATMENT NONCOMPLIANCE [None]
